FAERS Safety Report 7232571-4 (Version None)
Quarter: 2011Q1

REPORT INFORMATION
  Report Type: 
  Country: None (occurrence: None)
  Receive Date: 20110107
  Receipt Date: 20101230
  Transmission Date: 20110831
  Serious: Yes (Hospitalization)
  Sender: FDA-Public Use
  Company Number: URSO-2010-150

PATIENT
  Age: 81 Year
  Sex: Female

DRUGS (6)
  1. THIURAGYL TABLETS (PROPYLTHIORACIL) [Suspect]
     Indication: HYPERTHYROIDISM
     Dosage: ORAL; 450 MG QD
     Dates: start: 20100818, end: 20101125
  2. WARFARIN (WARFARIN POTASSIUM) [Concomitant]
  3. MERCAZOLE (THIAMAZOLE) [Suspect]
     Indication: HYPERTHYROIDISM
     Dosage: ORAL; 45 MG QD
     Dates: start: 20100619, end: 20100721
  4. LASIX [Concomitant]
  5. URSODIOL [Suspect]
     Indication: JAUNDICE
     Dosage: 600 MG ORAL
     Route: 048
     Dates: start: 20100721, end: 20101125
  6. SUNRYTHM (PILSICAINIDE HYDROCHLORIDE) [Suspect]
     Indication: TACHYCARDIA
     Dosage: ORAL; 150 MG QD
     Dates: start: 20100727

REACTIONS (9)
  - DISEASE RECURRENCE [None]
  - EOSINOPHIL COUNT INCREASED [None]
  - LYMPHOCYTE STIMULATION TEST POSITIVE [None]
  - GENERALISED ERYTHEMA [None]
  - IMMUNE SYSTEM DISORDER [None]
  - HEPATIC FUNCTION ABNORMAL [None]
  - PRURITUS GENERALISED [None]
  - JAUNDICE [None]
  - HYPERTHYROIDISM [None]
